FAERS Safety Report 16734178 (Version 1)
Quarter: 2019Q3

REPORT INFORMATION
  Report Type: Spontaneous
  Country: US (occurrence: US)
  Receive Date: 20190823
  Receipt Date: 20190823
  Transmission Date: 20191005
  Serious: No
  Sender: FDA-Public Use
  Company Number: US-ALLERGAN-1916073US

PATIENT
  Sex: Female
  Weight: 73.3 kg

DRUGS (30)
  1. SUPER B COMPLEX WITH VITAMIN C [Concomitant]
     Dosage: 1 DF, QD
     Route: 048
     Dates: start: 20141014
  2. TOPROL XL [Concomitant]
     Active Substance: METOPROLOL SUCCINATE
     Dosage: 50 MG, QD
     Route: 048
     Dates: start: 20181119
  3. DAILY MULTIPLE VITAMINS WITH IRON [Concomitant]
     Dosage: 1 DF, QD
     Route: 048
     Dates: start: 20170501
  4. IMITREX [Concomitant]
     Active Substance: SUMATRIPTAN SUCCINATE
     Indication: MIGRAINE
     Dosage: 100 MG, PRN
     Route: 048
     Dates: start: 20181120
  5. NORCO [Suspect]
     Active Substance: ACETAMINOPHEN\HYDROCODONE BITARTRATE
     Indication: PRODUCT USED FOR UNKNOWN INDICATION
     Dosage: 1 TABLET (7.5-325 MG), Q8HR AS NEEDED
     Route: 048
     Dates: start: 20160503
  6. VITAMIN D3 [Concomitant]
     Active Substance: CHOLECALCIFEROL
     Dosage: 1000 UNITS, QD
     Route: 048
     Dates: start: 20141014
  7. PREMARIN [Concomitant]
     Active Substance: ESTROGENS, CONJUGATED
     Dosage: UNK
  8. CARAFATE [Concomitant]
     Active Substance: SUCRALFATE
     Dosage: 1 DF, Q6HR
     Route: 048
     Dates: start: 20181204
  9. ASTELIN [Concomitant]
     Active Substance: AZELASTINE HYDROCHLORIDE
     Dosage: 2 DF, QD
     Route: 045
     Dates: start: 20170511
  10. DESYREL [Concomitant]
     Active Substance: TRAZODONE HYDROCHLORIDE
     Dosage: 100 MG, QHS
     Route: 048
     Dates: start: 20181119
  11. CELEXA [Suspect]
     Active Substance: CITALOPRAM HYDROBROMIDE
     Indication: PRODUCT USED FOR UNKNOWN INDICATION
     Dosage: 40 MG, QAM
     Route: 048
     Dates: start: 20180809, end: 20190128
  12. ELAVIL [Concomitant]
     Active Substance: AMITRIPTYLINE HYDROCHLORIDE
     Dosage: 25 MG, QHS
     Route: 048
  13. DIPROLENE [Concomitant]
     Active Substance: BETAMETHASONE DIPROPIONATE
     Dosage: UNK, BID
     Route: 061
     Dates: start: 20181128
  14. DESOWEN [Concomitant]
     Active Substance: DESONIDE
     Dosage: UNK, BID
     Route: 061
     Dates: start: 20161108
  15. APREMILAST [Concomitant]
     Active Substance: APREMILAST
     Dosage: 30 MG, BID
     Route: 048
  16. NEURONTIN [Concomitant]
     Active Substance: GABAPENTIN
     Dosage: 600 MG, TID
     Dates: start: 20181120
  17. PLAQUENIL [Concomitant]
     Active Substance: HYDROXYCHLOROQUINE SULFATE
     Dosage: 200 MG, BID
  18. RITALIN [Concomitant]
     Active Substance: METHYLPHENIDATE HYDROCHLORIDE
     Dosage: 10 MG, BID
     Route: 048
     Dates: start: 20181128
  19. PRILOSEC [Concomitant]
     Active Substance: OMEPRAZOLE MAGNESIUM
     Dosage: 20 MG, QD
     Route: 048
     Dates: start: 20181119
  20. ZANTAC [Concomitant]
     Active Substance: RANITIDINE HYDROCHLORIDE
     Dosage: 300 MG, QHS
     Route: 048
     Dates: start: 20181217
  21. LIPITOR [Concomitant]
     Active Substance: ATORVASTATIN CALCIUM
     Dosage: 80 MG, QD
     Route: 048
     Dates: start: 20181119
  22. FOLVITE [Concomitant]
     Active Substance: FOLIC ACID
     Dosage: 1 MG, QD
     Route: 048
     Dates: start: 20110616
  23. ASPIRIN. [Concomitant]
     Active Substance: ASPIRIN
     Dosage: 81 MG, QD
     Dates: start: 20150526, end: 20190227
  24. ZYRTEC [Concomitant]
     Active Substance: CETIRIZINE HYDROCHLORIDE
     Dosage: 10 MG, BID
     Route: 048
     Dates: start: 20161108
  25. LIDEX [Concomitant]
     Active Substance: FLUOCINONIDE
     Dosage: UNK, BID
     Route: 061
     Dates: start: 20171127
  26. LASIX [Concomitant]
     Active Substance: FUROSEMIDE
     Dosage: 20 MG, QD
     Route: 048
     Dates: start: 20181119
  27. SOMA [Concomitant]
     Active Substance: CARISOPRODOL
     Dosage: 350 MG, QHS
     Route: 048
  28. ZOFRAN [Concomitant]
     Active Substance: ONDANSETRON HYDROCHLORIDE
     Dosage: 24 MG, PRN
     Route: 048
  29. PHENERGAN [Concomitant]
     Active Substance: PROMETHAZINE HYDROCHLORIDE
     Indication: NAUSEA
     Dosage: ACTUAL: 12.5 MG, Q8HR, AS NEEDED
     Route: 048
     Dates: start: 20180122
  30. RETIN-A [Concomitant]
     Active Substance: TRETINOIN
     Dosage: UNK
     Route: 061
     Dates: start: 20161108

REACTIONS (5)
  - Faeces discoloured [Unknown]
  - Constipation [Unknown]
  - Eating disorder [Unknown]
  - Haemorrhoidal haemorrhage [Unknown]
  - Nausea [Unknown]
